FAERS Safety Report 17008550 (Version 2)
Quarter: 2021Q4

REPORT INFORMATION
  Report Type: Other
  Country: GB (occurrence: GB)
  Receive Date: 20191108
  Receipt Date: 20211112
  Transmission Date: 20220303
  Serious: Yes (Other)
  Sender: FDA-Public Use
  Company Number: GB-GLENMARK PHARMACEUTICALS-2019GMK044027

PATIENT

DRUGS (6)
  1. MONTELUKAST SODIUM [Suspect]
     Active Substance: MONTELUKAST SODIUM
     Indication: Asthma
     Dosage: 4 MG, UNK
     Route: 065
     Dates: start: 20181122, end: 20181129
  2. MONTELUKAST SODIUM [Suspect]
     Active Substance: MONTELUKAST SODIUM
     Dosage: UNK
     Route: 065
     Dates: start: 20181122, end: 20181129
  3. ATROVENT [Concomitant]
     Active Substance: IPRATROPIUM BROMIDE
     Indication: Product used for unknown indication
     Dosage: UNK
     Route: 065
  4. SERETIDE [Concomitant]
     Active Substance: FLUTICASONE PROPIONATE\SALMETEROL XINAFOATE
     Indication: Product used for unknown indication
     Dosage: UNK
     Route: 065
  5. BECLOMETHASONE DIPROPIONATE [Concomitant]
     Active Substance: BECLOMETHASONE DIPROPIONATE
     Indication: Product used for unknown indication
     Dosage: UNK
     Route: 065
  6. VENTOLIN                           /00139502/ [Concomitant]
     Indication: Product used for unknown indication
     Dosage: UNK
     Route: 065

REACTIONS (15)
  - Abnormal behaviour [Recovered/Resolved with Sequelae]
  - Urinary incontinence [Recovered/Resolved]
  - Mood swings [Recovered/Resolved with Sequelae]
  - Intentional self-injury [Unknown]
  - Diarrhoea haemorrhagic [Unknown]
  - Separation anxiety disorder [Recovering/Resolving]
  - Anger [Recovered/Resolved with Sequelae]
  - Bipolar disorder [Unknown]
  - Psychomotor hyperactivity [Unknown]
  - Nightmare [Unknown]
  - Aggression [Recovered/Resolved]
  - Anxiety [Not Recovered/Not Resolved]
  - Depression [Recovered/Resolved]
  - Hallucination, visual [Unknown]
  - Insomnia [Not Recovered/Not Resolved]
